FAERS Safety Report 4767780-7 (Version None)
Quarter: 2005Q3

REPORT INFORMATION
  Report Type: 
  Country: None (occurrence: None)
  Receive Date: 20050912
  Receipt Date: 20050902
  Transmission Date: 20060218
  Serious: Yes (Life-Threatening)
  Sender: FDA-Public Use
  Company Number: 2005-09-0076

PATIENT
  Age: 56 Year
  Sex: Female

DRUGS (3)
  1. INTRON A (INTERFERONA ALFA-2B RECOMBINANT) INJECTABLE POWDER [Suspect]
     Indication: HEPATITIS C
     Dosage: 3 MIU INTRAMUSCULAR
     Route: 030
     Dates: start: 20020310, end: 20030311
  2. REBETOL [Suspect]
     Indication: HEPATITIS C
     Dosage: 200 MG ORAL
     Route: 048
     Dates: start: 20020310, end: 20020825
  3. IMMUNOSUPPRESSANT (NOS) [Suspect]
     Indication: IMMUNOSUPPRESSION

REACTIONS (2)
  - APALLIC SYNDROME [None]
  - MENINGITIS BACTERIAL [None]
